FAERS Safety Report 9346298 (Version 1)
Quarter: 2013Q2

REPORT INFORMATION
  Report Type: Spontaneous
  Country: GB (occurrence: GB)
  Receive Date: 20130613
  Receipt Date: 20130613
  Transmission Date: 20140414
  Serious: Yes (Other)
  Sender: FDA-Public Use
  Company Number: GB-SANOFI-AVENTIS-2013SA058904

PATIENT
  Age: 26 Year
  Sex: 0

DRUGS (30)
  1. TRAMADOL [Suspect]
     Indication: PAIN
     Route: 065
  2. TRAMADOL [Suspect]
     Indication: MYALGIA
     Route: 065
  3. TRAMADOL [Suspect]
     Indication: OSTEOPOROSIS
     Route: 065
  4. TRAMADOL [Suspect]
     Indication: OSTEOARTHRITIS
     Route: 065
  5. TRAMADOL [Suspect]
     Indication: RHEUMATOID ARTHRITIS
     Route: 065
  6. TRAMADOL [Suspect]
     Indication: HYPERMOBILITY SYNDROME
     Route: 065
  7. NAPROXEN [Suspect]
     Indication: PAIN
     Route: 065
  8. NAPROXEN [Suspect]
     Indication: MYALGIA
     Route: 065
  9. NAPROXEN [Suspect]
     Indication: OSTEOPOROSIS
     Route: 065
  10. NAPROXEN [Suspect]
     Indication: OSTEOARTHRITIS
     Route: 065
  11. NAPROXEN [Suspect]
     Indication: RHEUMATOID ARTHRITIS
     Route: 065
  12. NAPROXEN [Suspect]
     Indication: HYPERMOBILITY SYNDROME
     Route: 065
  13. CO-CODAMOL [Suspect]
     Indication: PAIN
     Route: 065
  14. CO-CODAMOL [Suspect]
     Indication: MYALGIA
     Route: 065
  15. CO-CODAMOL [Suspect]
     Indication: OSTEOPOROSIS
     Route: 065
  16. CO-CODAMOL [Suspect]
     Indication: OSTEOARTHRITIS
     Route: 065
  17. CO-CODAMOL [Suspect]
     Indication: RHEUMATOID ARTHRITIS
     Route: 065
  18. CO-CODAMOL [Suspect]
     Indication: HYPERMOBILITY SYNDROME
     Route: 065
  19. DICLOFENAC [Suspect]
     Indication: PAIN
     Route: 065
  20. DICLOFENAC [Suspect]
     Indication: MYALGIA
     Route: 065
  21. DICLOFENAC [Suspect]
     Indication: OSTEOPOROSIS
     Route: 065
  22. DICLOFENAC [Suspect]
     Indication: OSTEOARTHRITIS
     Route: 065
  23. DICLOFENAC [Suspect]
     Indication: RHEUMATOID ARTHRITIS
     Route: 065
  24. DICLOFENAC [Suspect]
     Indication: HYPERMOBILITY SYNDROME
     Route: 065
  25. LEFLUNOMIDE [Suspect]
     Indication: PAIN
     Route: 065
  26. LEFLUNOMIDE [Suspect]
     Indication: MYALGIA
     Route: 065
  27. LEFLUNOMIDE [Suspect]
     Indication: OSTEOPOROSIS
     Route: 065
  28. LEFLUNOMIDE [Suspect]
     Indication: OSTEOARTHRITIS
     Route: 065
  29. LEFLUNOMIDE [Suspect]
     Indication: RHEUMATOID ARTHRITIS
     Route: 065
  30. LEFLUNOMIDE [Suspect]
     Indication: HYPERMOBILITY SYNDROME
     Route: 065

REACTIONS (2)
  - Suicidal ideation [Unknown]
  - Drug ineffective [Unknown]
